FAERS Safety Report 8336099-X (Version None)
Quarter: 2012Q1

REPORT INFORMATION
  Report Type: 
  Country: None (occurrence: None)
  Receive Date: 20120329
  Receipt Date: 20090119
  Transmission Date: 20120608
  Serious: Yes (Other)
  Sender: FDA-Public Use
  Company Number: PHEH2009US00980

PATIENT
  Age: 67 Year
  Sex: Male

DRUGS (4)
  1. ANTIDEPRESSANTS (NO INGREDIENTS/SUBSTANCES) [Concomitant]
  2. ATENOLOL [Concomitant]
  3. EXELON [Suspect]
     Indication: AMNESIA
     Dosage: 4.6 MG, QD, TRANSDERMAL 9.5 MG, QD, TRANSDERMAL
     Route: 062
  4. EXELON [Suspect]
     Indication: AMNESIA
     Dosage: UNK, UNK
     Dates: start: 20090108

REACTIONS (3)
  - NAUSEA [None]
  - MALAISE [None]
  - SYNCOPE [None]
